FAERS Safety Report 7797489-7 (Version None)
Quarter: 2011Q4

REPORT INFORMATION
  Report Type: 
  Country: None (occurrence: None)
  Receive Date: 20111003
  Receipt Date: 20110917
  Transmission Date: 20120403
  Serious: Yes (Hospitalization)
  Sender: FDA-Public Use
  Company Number: 2011AP002109

PATIENT
  Age: 15 Year
  Sex: Female

DRUGS (1)
  1. PREDNISOLONE [Suspect]
     Indication: HODGKIN'S DISEASE
     Dosage: 40 MG/M2;QD;PO
     Route: 048

REACTIONS (4)
  - SEPTIC SHOCK [None]
  - CHILLS [None]
  - ADRENAL INSUFFICIENCY [None]
  - COUGH [None]
